FAERS Safety Report 12147919 (Version 2)
Quarter: 2018Q4

REPORT INFORMATION
  Report Type: Spontaneous
  Country: FR (occurrence: FR)
  Receive Date: 20160304
  Receipt Date: 20181026
  Transmission Date: 20190204
  Serious: Yes (Life-Threatening, Hospitalization, Other)
  Sender: FDA-Public Use
  Company Number: FR-UCBSA-2016007323

PATIENT
  Age: 61 Year
  Sex: Female
  Weight: 73.5 kg

DRUGS (5)
  1. VIMPAT [Suspect]
     Active Substance: LACOSAMIDE
     Indication: PRODUCT USED FOR UNKNOWN INDICATION
     Dosage: 800 MG, ONE TIME DOSE ( 200MG X 4 TABLETS)
     Route: 048
     Dates: start: 20160130, end: 20160130
  2. LYRICA [Suspect]
     Active Substance: PREGABALIN
     Indication: PRODUCT USED FOR UNKNOWN INDICATION
     Dosage: 2500 MG, ONE TIME DOSE (100 MG X 25 TABLETS)
     Route: 048
     Dates: start: 20160130, end: 20160130
  3. ZOLPIDEM [Suspect]
     Active Substance: ZOLPIDEM\ZOLPIDEM TARTRATE
     Indication: PRODUCT USED FOR UNKNOWN INDICATION
     Dosage: 70 MG, ONE TIME DOSE (10 MG X 7 TABLETS)
     Route: 048
     Dates: start: 20160130, end: 20160130
  4. ESOMEPRAZOL MYLAN [Suspect]
     Active Substance: ESOMEPRAZOLE MAGNESIUM
     Indication: PRODUCT USED FOR UNKNOWN INDICATION
     Dosage: 280 MG, ONE TIME DOSE (40 MG X 7 TABLETS)
     Route: 048
     Dates: start: 20160130, end: 20160130
  5. MEDROL [Suspect]
     Active Substance: METHYLPREDNISOLONE
     Indication: PRODUCT USED FOR UNKNOWN INDICATION
     Dosage: 320 MG, ONE TIME DOSE (16 MG X 20 TABLETS)
     Route: 048
     Dates: start: 20160130, end: 20160130

REACTIONS (4)
  - Coma [Recovered/Resolved]
  - Poisoning deliberate [Unknown]
  - Myoclonus [Unknown]
  - Intentional overdose [Unknown]

NARRATIVE: CASE EVENT DATE: 20160130
